FAERS Safety Report 5083724-5 (Version None)
Quarter: 2006Q3

REPORT INFORMATION
  Report Type: 
  Country: None (occurrence: None)
  Receive Date: 20060818
  Receipt Date: 20060720
  Transmission Date: 20061208
  Serious: Yes (Other)
  Sender: FDA-Public Use
  Company Number: US-ROCHE-456542

PATIENT
  Age: 52 Year
  Sex: Female
  Weight: 70.3 kg

DRUGS (9)
  1. BONIVA [Suspect]
     Indication: OSTEOPOROSIS
     Dosage: REPORTED AS 150 MG ORALLY EVERY MONTH.
     Route: 048
     Dates: start: 20060510, end: 20060510
  2. DEPAKOTE [Concomitant]
  3. PHENYTOIN [Concomitant]
  4. DICYCLOMINE [Concomitant]
  5. LORAZEPAM [Concomitant]
  6. CLONAZEPAM [Concomitant]
  7. UNSPECIFIED DRUG [Concomitant]
     Dosage: DRUG REPORTED AS KEPKA.
  8. NEURONTIN [Concomitant]
  9. SYNTHROID [Concomitant]

REACTIONS (1)
  - GRAND MAL CONVULSION [None]
